FAERS Safety Report 15586300 (Version 1)
Quarter: 2018Q4

REPORT INFORMATION
  Report Type: Spontaneous
  Country: US (occurrence: US)
  Receive Date: 20181105
  Receipt Date: 20181105
  Transmission Date: 20190205
  Serious: Yes (Hospitalization, Disabling)
  Sender: FDA-Public Use
  Company Number: US-JNJFOC-20181101440

PATIENT
  Age: 51 Year
  Sex: Female

DRUGS (1)
  1. INVOKANA [Suspect]
     Active Substance: CANAGLIFLOZIN
     Indication: TYPE 2 DIABETES MELLITUS
     Route: 048
     Dates: start: 20150407

REACTIONS (8)
  - Cellulitis [Unknown]
  - Diabetic foot infection [Recovered/Resolved]
  - Staphylococcal infection [Unknown]
  - Abscess limb [Unknown]
  - Diabetic ulcer [Unknown]
  - Leg amputation [Unknown]
  - Osteomyelitis [Unknown]
  - Foot amputation [Unknown]

NARRATIVE: CASE EVENT DATE: 201602
